FAERS Safety Report 9771992 (Version 1)
Quarter: 2013Q4

REPORT INFORMATION
  Report Type: Report from Study
  Country: US (occurrence: US)
  Receive Date: 20131219
  Receipt Date: 20131219
  Transmission Date: 20140711
  Serious: Yes (Life-Threatening, Hospitalization)
  Sender: FDA-Public Use
  Company Number: US-ROCHE-1318741

PATIENT
  Age: 37 Year
  Sex: Female

DRUGS (6)
  1. VEMURAFENIB [Suspect]
     Indication: METASTATIC MALIGNANT MELANOMA
     Dosage: DATE OF LAST DOSE PRIOR TO SAE WAS ON 08/DEC/2013.
     Route: 048
     Dates: start: 20130821, end: 20131208
  2. IL-2 [Suspect]
     Indication: METASTATIC MALIGNANT MELANOMA
     Dosage: 32.9 MILL UNTIL, DATE OF LAST DOSE PRIOR TO SAE WAS ON 07/DEC/2013
     Route: 042
     Dates: start: 20130909, end: 20131208
  3. LORAZEPAM [Concomitant]
  4. OXYCODONE [Concomitant]
  5. MOTRIN [Concomitant]
  6. NICOTINE [Concomitant]

REACTIONS (1)
  - Delirium [Recovering/Resolving]
